FAERS Safety Report 5797820-8 (Version None)
Quarter: 2008Q2

REPORT INFORMATION
  Report Type: 
  Country: None (occurrence: None)
  Receive Date: 20080630
  Receipt Date: 20080620
  Transmission Date: 20081010
  Serious: Yes (Other)
  Sender: FDA-Public Use
  Company Number: 08-000999

PATIENT
  Sex: Female

DRUGS (1)
  1. DORYX [Suspect]
     Indication: MALARIA PROPHYLAXIS
     Dosage: ORAL
     Route: 048

REACTIONS (6)
  - BLISTER [None]
  - DRUG INEFFECTIVE [None]
  - PARAESTHESIA [None]
  - PHOTODERMATOSIS [None]
  - PLASMODIUM FALCIPARUM INFECTION [None]
  - RASH [None]
